FAERS Safety Report 10312182 (Version 1)
Quarter: 2014Q3

REPORT INFORMATION
  Report Type: Spontaneous
  Country: TW (occurrence: TW)
  Receive Date: 20140718
  Receipt Date: 20140718
  Transmission Date: 20150326
  Serious: Yes (Other)
  Sender: FDA-Public Use
  Company Number: PHHY2014TW086419

PATIENT
  Age: 29 Year
  Sex: Male

DRUGS (5)
  1. ZOLPIDEM [Suspect]
     Active Substance: ZOLPIDEM\ZOLPIDEM TARTRATE
     Dosage: 10 MG, UNK
     Route: 042
  2. ZOLPIDEM [Suspect]
     Active Substance: ZOLPIDEM\ZOLPIDEM TARTRATE
     Indication: INSOMNIA
     Dosage: 40 MG, UNK
  3. DULOXETINE [Concomitant]
     Active Substance: DULOXETINE
     Dosage: 60 MG, UNK
  4. FLUNITRAZEPAM [Concomitant]
     Active Substance: FLUNITRAZEPAM
  5. ZOLPIDEM [Suspect]
     Active Substance: ZOLPIDEM\ZOLPIDEM TARTRATE
     Dosage: 30 MG, UNK

REACTIONS (15)
  - Swelling [Unknown]
  - Feeling hot [Unknown]
  - Communication disorder [Unknown]
  - Pain [Unknown]
  - Carbuncle [Unknown]
  - Abnormal behaviour [Unknown]
  - Drug dependence [Unknown]
  - Confusional state [Unknown]
  - Drug tolerance increased [Unknown]
  - Emotional disorder [Unknown]
  - Anxiety [Unknown]
  - Wrong technique in drug usage process [Unknown]
  - Thrombophlebitis [Unknown]
  - Insomnia [Recovering/Resolving]
  - Drug abuse [Unknown]
